FAERS Safety Report 6578263-6 (Version None)
Quarter: 2010Q1

REPORT INFORMATION
  Report Type: 
  Country: None (occurrence: None)
  Receive Date: 20100211
  Receipt Date: 20100209
  Transmission Date: 20100710
  Serious: Yes (Life-Threatening, Hospitalization, Disabling, Other)
  Sender: FDA-Public Use
  Company Number: A0843929A

PATIENT
  Age: 70 Year
  Sex: Male

DRUGS (2)
  1. ARRANON [Suspect]
     Dosage: 1200MGM2 CYCLIC
     Dates: start: 20100202, end: 20100206
  2. GANCICLOVIR [Concomitant]

REACTIONS (1)
  - EPSTEIN-BARR VIRUS INFECTION [None]
